FAERS Safety Report 4821583-3 (Version None)
Quarter: 2005Q4

REPORT INFORMATION
  Report Type: 
  Country: None (occurrence: None)
  Receive Date: 20051103
  Receipt Date: 20051103
  Transmission Date: 20060501
  Serious: Yes (Life-Threatening)
  Sender: FDA-Public Use
  Company Number: None

PATIENT
  Age: 57 Year
  Sex: Female
  Weight: 113.3993 kg

DRUGS (3)
  1. TAXOTERE [Suspect]
     Indication: BREAST CANCER
     Dosage: 164 MG Q 2 WEEK IV
     Route: 042
     Dates: start: 20050914
  2. TAXOTERE [Suspect]
     Indication: BREAST CANCER
     Dosage: 164 MG Q 2 WEEK IV
     Route: 042
     Dates: start: 20051011
  3. TAXOTERE [Suspect]
     Indication: BREAST CANCER
     Dosage: 164 MG Q 2 WEEK IV
     Route: 042
     Dates: start: 20051101

REACTIONS (3)
  - CHEST PAIN [None]
  - DYSPNOEA [None]
  - INFUSION RELATED REACTION [None]
